FAERS Safety Report 5883430-0 (Version None)
Quarter: 2008Q3

REPORT INFORMATION
  Report Type: 
  Country: None (occurrence: None)
  Receive Date: 20080912
  Receipt Date: 20080912
  Transmission Date: 20090109
  Serious: Yes (Hospitalization)
  Sender: FDA-Public Use
  Company Number: None

PATIENT
  Age: 78 Year
  Sex: Male
  Weight: 102.5129 kg

DRUGS (13)
  1. DAPTOMYCIN [Suspect]
     Indication: GRAFT INFECTION
     Dosage: 600MG IV Q24
     Route: 042
     Dates: start: 20080411, end: 20080512
  2. FENTANYL TRANSDERMAL SYSTEM [Concomitant]
  3. NITROGLYCERIN [Concomitant]
  4. LISINOPRIL [Concomitant]
  5. PLAVIX [Concomitant]
  6. TOPROL-XL [Concomitant]
  7. ALBUTEROL [Concomitant]
  8. ASPIRIN [Concomitant]
  9. CITRACAL [Concomitant]
  10. VYTORAN [Concomitant]
  11. HYDROCHLOROTHIAZIDE [Concomitant]
  12. PRILOSEC [Concomitant]
  13. FLOMAX [Concomitant]

REACTIONS (5)
  - ASPARTATE AMINOTRANSFERASE INCREASED [None]
  - BLOOD CREATINE PHOSPHOKINASE INCREASED [None]
  - DIZZINESS [None]
  - DYSPNOEA [None]
  - URINE OUTPUT DECREASED [None]
